FAERS Safety Report 10906826 (Version 1)
Quarter: 2015Q1

REPORT INFORMATION
  Report Type: Spontaneous
  Country: US (occurrence: None)
  Receive Date: 20150309
  Receipt Date: 20150309
  Transmission Date: 20150721
  Serious: No
  Sender: FDA-Public Use
  Company Number: None

PATIENT
  Age: 31 Year
  Sex: Male

DRUGS (1)
  1. HUMIRA [Suspect]
     Active Substance: ADALIMUMAB
     Route: 058
     Dates: start: 20141111

REACTIONS (4)
  - Pain [None]
  - Musculoskeletal stiffness [None]
  - Rash [None]
  - Drug effect decreased [None]

NARRATIVE: CASE EVENT DATE: 20150223
